FAERS Safety Report 5610178-X (Version None)
Quarter: 2008Q1

REPORT INFORMATION
  Report Type: 
  Country: None (occurrence: None)
  Receive Date: 20080131
  Receipt Date: 20080122
  Transmission Date: 20080703
  Serious: Yes (Hospitalization, Other)
  Sender: FDA-Public Use
  Company Number: GB-PFIZER INC-2008006898

PATIENT
  Age: 54 Year
  Sex: Female

DRUGS (4)
  1. LYRICA [Suspect]
     Indication: RESTLESS LEGS SYNDROME
     Route: 048
     Dates: start: 20070110, end: 20070305
  2. ALBUTEROL [Concomitant]
     Route: 055
  3. SYMBICORT [Concomitant]
     Route: 055
  4. TIOTROPIUM BROMIDE [Concomitant]
     Route: 055

REACTIONS (5)
  - ANGINA PECTORIS [None]
  - DIZZINESS [None]
  - DYSARTHRIA [None]
  - ELECTROCARDIOGRAM CHANGE [None]
  - HEADACHE [None]
